FAERS Safety Report 5766098-3 (Version None)
Quarter: 2008Q2

REPORT INFORMATION
  Report Type: 
  Country: None (occurrence: None)
  Receive Date: 20080611
  Receipt Date: 20080603
  Transmission Date: 20081010
  Serious: Yes (Other)
  Sender: FDA-Public Use
  Company Number: AR-PFIZER INC-2008046646

PATIENT
  Sex: Male
  Weight: 66 kg

DRUGS (3)
  1. AMLOC [Suspect]
     Indication: HYPERTENSION
     Dosage: TEXT:5MG QD EVERY DAY TDD:5MG
     Route: 048
  2. AMLOC [Suspect]
     Route: 048
     Dates: start: 20080401, end: 20080531
  3. LEVOTHYROXINE SODIUM [Concomitant]
     Route: 048

REACTIONS (3)
  - DRUG ADMINISTRATION ERROR [None]
  - HAEMORRHAGIC URTICARIA [None]
  - JOINT SWELLING [None]
